FAERS Safety Report 15204209 (Version 1)
Quarter: 2018Q3

REPORT INFORMATION
  Report Type: Spontaneous
  Country: US (occurrence: US)
  Receive Date: 20180628
  Receipt Date: 20180628
  Transmission Date: 20181010
  Serious: Yes (Other)
  Sender: FDA-Public Use
  Company Number: None

PATIENT
  Age: 88 Year
  Sex: Female

DRUGS (2)
  1. NORTRIPTYLINE [Suspect]
     Active Substance: NORTRIPTYLINE
     Route: 048
     Dates: start: 20180627, end: 20180627
  2. NORTRIPTYLINE 10,G [Concomitant]
     Dates: start: 20180627, end: 20180628

REACTIONS (1)
  - Hypoaesthesia [None]

NARRATIVE: CASE EVENT DATE: 20180627
